FAERS Safety Report 21757823 (Version 1)
Quarter: 2022Q4

REPORT INFORMATION
  Report Type: Spontaneous
  Country: US (occurrence: None)
  Receive Date: 20221221
  Receipt Date: 20221221
  Transmission Date: 20230113
  Serious: Yes (Other)
  Sender: FDA-Public Use
  Company Number: US-ROCHE-2865522

PATIENT
  Age: 63 Year
  Sex: Male
  Weight: 99.1 kg

DRUGS (3)
  1. ACTIVASE [Suspect]
     Active Substance: ALTEPLASE
     Indication: Ischaemic stroke
     Dosage: 90 MG OF ALTEPLASE IV GIVEN AS 9 MG BOLUS OVER 1 MIN FOLLOWED BY 81 MG INFUSION OVER 1 HR.
     Route: 042
     Dates: start: 20210206, end: 20210206
  2. ACTIVASE [Suspect]
     Active Substance: ALTEPLASE
     Indication: Cerebrovascular accident
     Route: 065
  3. LABETALOL [Concomitant]
     Active Substance: LABETALOL\LABETALOL HYDROCHLORIDE
     Indication: Hypertension
     Route: 042
     Dates: start: 20210206, end: 20210206

REACTIONS (1)
  - Angioedema [Recovered/Resolved]

NARRATIVE: CASE EVENT DATE: 20210206
